FAERS Safety Report 9494301 (Version 1)
Quarter: 2013Q3

REPORT INFORMATION
  Report Type: Spontaneous
  Country: CN (occurrence: CN)
  Receive Date: 20130903
  Receipt Date: 20130903
  Transmission Date: 20140515
  Serious: Yes (Death)
  Sender: FDA-Public Use
  Company Number: CN-JNJFOC-20130813759

PATIENT
  Age: 63 Year
  Sex: Male

DRUGS (15)
  1. DOXORUBICIN HYDROCHLORIDE [Suspect]
     Indication: B-CELL SMALL LYMPHOCYTIC LYMPHOMA
     Route: 042
  2. DOXORUBICIN HYDROCHLORIDE [Suspect]
     Indication: CHRONIC LYMPHOCYTIC LEUKAEMIA
     Route: 042
  3. DOXORUBICIN HYDROCHLORIDE [Suspect]
     Indication: NON-HODGKIN^S LYMPHOMA
     Route: 042
  4. BLEOMYCIN [Suspect]
     Indication: B-CELL SMALL LYMPHOCYTIC LYMPHOMA
     Route: 065
  5. BLEOMYCIN [Suspect]
     Indication: CHRONIC LYMPHOCYTIC LEUKAEMIA
     Route: 065
  6. BLEOMYCIN [Suspect]
     Indication: NON-HODGKIN^S LYMPHOMA
     Route: 065
  7. CYCLOPHOSPHAMIDE [Suspect]
     Indication: B-CELL SMALL LYMPHOCYTIC LYMPHOMA
     Route: 065
  8. CYCLOPHOSPHAMIDE [Suspect]
     Indication: CHRONIC LYMPHOCYTIC LEUKAEMIA
     Route: 065
  9. CYCLOPHOSPHAMIDE [Suspect]
     Indication: NON-HODGKIN^S LYMPHOMA
     Route: 065
  10. VINCRISTINE [Suspect]
     Indication: B-CELL SMALL LYMPHOCYTIC LYMPHOMA
     Route: 065
  11. VINCRISTINE [Suspect]
     Indication: CHRONIC LYMPHOCYTIC LEUKAEMIA
     Route: 065
  12. VINCRISTINE [Suspect]
     Indication: NON-HODGKIN^S LYMPHOMA
     Route: 065
  13. PREDNISONE [Suspect]
     Indication: B-CELL SMALL LYMPHOCYTIC LYMPHOMA
     Route: 065
  14. PREDNISONE [Suspect]
     Indication: CHRONIC LYMPHOCYTIC LEUKAEMIA
     Route: 065
  15. PREDNISONE [Suspect]
     Indication: NON-HODGKIN^S LYMPHOMA
     Route: 065

REACTIONS (1)
  - Traumatic lung injury [Fatal]
